FAERS Safety Report 6867924-7 (Version None)
Quarter: 2010Q3

REPORT INFORMATION
  Report Type: 
  Country: None (occurrence: None)
  Receive Date: 20100722
  Receipt Date: 20080507
  Transmission Date: 20110219
  Serious: No
  Sender: FDA-Public Use
  Company Number: US-PFIZER INC-2008039594

PATIENT
  Sex: Male
  Weight: 85 kg

DRUGS (13)
  1. CHANTIX [Suspect]
     Indication: SMOKING CESSATION THERAPY
     Route: 048
     Dates: start: 20080423
  2. METFORMIN [Concomitant]
  3. CYMBALTA [Concomitant]
  4. LEXAPRO [Concomitant]
  5. TRICOR [Concomitant]
  6. LISINOPRIL [Concomitant]
  7. ACETYLSALICYLIC ACID [Concomitant]
  8. METOPROLOL SUCCINATE [Concomitant]
  9. CRESTOR [Concomitant]
  10. PLAVIX [Concomitant]
  11. AMBIEN [Concomitant]
  12. CILOSTAZOL [Concomitant]
  13. BUPRENORPHINE HCL AND NALOXONE HCL [Concomitant]

REACTIONS (3)
  - HEADACHE [None]
  - NAUSEA [None]
  - VOMITING [None]
